FAERS Safety Report 5486958-0 (Version None)
Quarter: 2007Q4

REPORT INFORMATION
  Report Type: 
  Country: None (occurrence: None)
  Receive Date: 20071012
  Receipt Date: 20071012
  Transmission Date: 20080405
  Serious: Yes (Other)
  Sender: FDA-Public Use
  Company Number: None

PATIENT
  Age: 30 Year
  Sex: Female
  Weight: 90.7194 kg

DRUGS (14)
  1. CELEBREX [Suspect]
     Indication: OSTEOARTHRITIS
     Dosage: 1 CAPSULE QD PO
     Route: 048
     Dates: start: 20070727, end: 20070826
  2. LODINE XL [Suspect]
     Indication: OSTEOARTHRITIS
     Dosage: 1 TABLET BID PO
     Route: 048
     Dates: start: 20070827, end: 20070915
  3. XYREM [Concomitant]
  4. ZOCOR [Concomitant]
  5. JANUVIA [Concomitant]
  6. ZYRTEC [Concomitant]
  7. LISINOPRIL [Concomitant]
  8. MIRAPEX [Concomitant]
  9. WELLBUTRIN [Concomitant]
  10. ZOLOFT [Concomitant]
  11. LAMICTAL [Concomitant]
  12. PROVIGIL [Concomitant]
  13. SONATA [Concomitant]
  14. SEASONALE [Concomitant]

REACTIONS (2)
  - BLOOD PRESSURE INCREASED [None]
  - HEART RATE INCREASED [None]
